FAERS Safety Report 19541506 (Version 1)
Quarter: 2021Q3

REPORT INFORMATION
  Report Type: Spontaneous
  Country: US (occurrence: US)
  Receive Date: 20210713
  Receipt Date: 20210713
  Transmission Date: 20211014
  Serious: No
  Sender: FDA-Public Use
  Company Number: US-ORGANON-O2107USA000154

PATIENT
  Age: 53 Year
  Sex: Male

DRUGS (6)
  1. SINGULAIR [Suspect]
     Active Substance: MONTELUKAST SODIUM
     Indication: BRONCHIECTASIS
     Dosage: UNK
     Route: 048
  2. SINGULAIR [Suspect]
     Active Substance: MONTELUKAST SODIUM
     Indication: EMPHYSEMA
  3. FLUTICASONE FUROATE;VILANTEROL [Concomitant]
     Active Substance: FLUTICASONE FUROATE\VILANTEROL TRIFENATATE
     Indication: BRONCHIECTASIS
     Dosage: UNK
  4. FLUTICASONE FUROATE;VILANTEROL [Concomitant]
     Active Substance: FLUTICASONE FUROATE\VILANTEROL TRIFENATATE
     Indication: EMPHYSEMA
  5. SINGULAIR [Suspect]
     Active Substance: MONTELUKAST SODIUM
     Indication: EMPHYSEMA
  6. FLUTICASONE FUROATE;VILANTEROL [Concomitant]
     Active Substance: FLUTICASONE FUROATE\VILANTEROL TRIFENATATE
     Indication: EMPHYSEMA

REACTIONS (1)
  - Product use in unapproved indication [Unknown]
